FAERS Safety Report 11519449 (Version 1)
Quarter: 2015Q3

REPORT INFORMATION
  Report Type: Spontaneous
  Country: CA (occurrence: CA)
  Receive Date: 20150918
  Receipt Date: 20150918
  Transmission Date: 20151125
  Serious: Yes (Other)
  Sender: FDA-Public Use
  Company Number: PHHY2015CA110449

PATIENT
  Age: 30 Year
  Sex: Male

DRUGS (1)
  1. PREDNISONE. [Suspect]
     Active Substance: PREDNISONE
     Indication: EOSINOPHILIC PNEUMONIA ACUTE
     Route: 048

REACTIONS (4)
  - Rash morbilliform [Recovering/Resolving]
  - Condition aggravated [Unknown]
  - Eosinophilia [Recovering/Resolving]
  - Rash pruritic [Recovering/Resolving]
